FAERS Safety Report 9838688 (Version 2)
Quarter: 2014Q2

REPORT INFORMATION
  Report Type: Report from Study
  Country: US (occurrence: US)
  Receive Date: 20140123
  Receipt Date: 20140404
  Transmission Date: 20141212
  Serious: Yes (Hospitalization)
  Sender: FDA-Public Use
  Company Number: US-ABBVIE-14P-163-1189803-00

PATIENT
  Sex: Male
  Weight: 68.1 kg

DRUGS (8)
  1. HUMIRA [Suspect]
     Indication: CROHN^S DISEASE
     Dates: start: 201210, end: 201210
  2. HUMIRA [Suspect]
     Dosage: TWO WKS AFTER 160 MG DOSE
  3. HUMIRA [Suspect]
     Dosage: FOUR WKS AFTER 160MG DOSE
     Dates: end: 201212
  4. HUMIRA [Suspect]
  5. HUMIRA [Suspect]
     Dosage: TWO WK AFTER 160 MG DOSE
  6. HUMIRA [Suspect]
     Dosage: FOUR WKS AFTER 160 MG DOSE
  7. IRON [Concomitant]
     Indication: MINERAL SUPPLEMENTATION
  8. VITAMINS [Concomitant]
     Indication: VITAMIN SUPPLEMENTATION

REACTIONS (3)
  - Small intestinal stenosis [Recovered/Resolved]
  - Drug ineffective [Not Recovered/Not Resolved]
  - Procedural pain [Recovered/Resolved]
